FAERS Safety Report 22637873 (Version 4)
Quarter: 2023Q4

REPORT INFORMATION
  Report Type: Report from Study
  Country: US (occurrence: US)
  Receive Date: 20230626
  Receipt Date: 20231116
  Transmission Date: 20240109
  Serious: Yes (Other)
  Sender: FDA-Public Use
  Company Number: US-002147023-NVSC2023US143046

PATIENT
  Sex: Female

DRUGS (1)
  1. PIQRAY [Suspect]
     Active Substance: ALPELISIB
     Indication: Neoplasm malignant
     Dosage: 300 MG, QD
     Route: 048

REACTIONS (5)
  - Diabetes mellitus [Unknown]
  - Breast cancer stage IV [Unknown]
  - Ageusia [Unknown]
  - Pruritus [Unknown]
  - Product use issue [Unknown]
